FAERS Safety Report 7514685-4 (Version None)
Quarter: 2011Q2

REPORT INFORMATION
  Report Type: 
  Country: None (occurrence: None)
  Receive Date: 20110520
  Receipt Date: 20110506
  Transmission Date: 20111010
  Serious: Yes (Hospitalization)
  Sender: FDA-Public Use
  Company Number: 2011001739

PATIENT
  Age: 83 Year
  Sex: Male
  Weight: 71.9 kg

DRUGS (4)
  1. ERLOTINIB HYDROCHLORIDE [Suspect]
     Indication: NON-SMALL CELL LUNG CANCER
     Dosage: 100 MG, QPM, ORAL
     Route: 048
     Dates: start: 20110406, end: 20110411
  2. AZD6244 HYDROGEN SULFATE [Suspect]
     Indication: NON-SMALL CELL LUNG CANCER
     Dosage: 150 MG, QAM, ORAL
     Route: 048
     Dates: start: 20110406, end: 20110411
  3. COUMADIN [Concomitant]
  4. METOPROLOL SUCCINATE [Concomitant]

REACTIONS (13)
  - NAUSEA [None]
  - RESPIRATORY FAILURE [None]
  - DIARRHOEA [None]
  - INTERNATIONAL NORMALISED RATIO INCREASED [None]
  - RENAL FAILURE ACUTE [None]
  - ACTIVATED PARTIAL THROMBOPLASTIN TIME PROLONGED [None]
  - VARICES OESOPHAGEAL [None]
  - VOMITING [None]
  - HAEMOGLOBIN DECREASED [None]
  - HYPOTENSION [None]
  - GASTRIC HAEMORRHAGE [None]
  - PROTHROMBIN TIME PROLONGED [None]
  - GASTRIC ULCER [None]
